FAERS Safety Report 8101539-8 (Version None)
Quarter: 2012Q1

REPORT INFORMATION
  Report Type: 
  Country: None (occurrence: None)
  Receive Date: 20120129
  Receipt Date: 20110916
  Transmission Date: 20120608
  Serious: No
  Sender: FDA-Public Use
  Company Number: US-ABBOTT-11P-163-0855698-00

PATIENT
  Age: 34 Year
  Sex: Female

DRUGS (2)
  1. IV LIPID FUSION [Concomitant]
     Indication: IN VITRO FERTILISATION
     Dosage: BI-WEEKLY
  2. HUMIRA [Suspect]
     Indication: IN VITRO FERTILISATION
     Dates: start: 20110902

REACTIONS (11)
  - RASH [None]
  - INJECTION SITE RASH [None]
  - PRURITUS [None]
  - NIGHT SWEATS [None]
  - HEART RATE IRREGULAR [None]
  - INJECTION SITE SWELLING [None]
  - RASH PAPULAR [None]
  - VISION BLURRED [None]
  - HEADACHE [None]
  - PSORIASIS [None]
  - OROPHARYNGEAL PAIN [None]
